FAERS Safety Report 15160370 (Version 1)
Quarter: 2018Q3

REPORT INFORMATION
  Report Type: Spontaneous
  Country: HR (occurrence: HR)
  Receive Date: 20180718
  Receipt Date: 20180718
  Transmission Date: 20181010
  Serious: Yes (Death, Hospitalization, Other)
  Sender: FDA-Public Use
  Company Number: HR-BAYER-200917610GPV

PATIENT
  Age: 73 Year
  Sex: Female

DRUGS (13)
  1. FUROSEMIDE. [Interacting]
     Active Substance: FUROSEMIDE
     Indication: URINARY TRACT INFECTION
  2. ACETYLSALICYLIC ACID (} 100 MG, FAST RELEASE) [Concomitant]
     Active Substance: ASPIRIN
     Indication: CHRONIC KIDNEY DISEASE
     Dosage: UNK
  3. LISINOPRIL. [Concomitant]
     Active Substance: LISINOPRIL
     Indication: HYPERTENSION
     Dosage: UNK
     Route: 065
  4. ACETYLSALICYLIC ACID (} 100 MG, FAST RELEASE) [Concomitant]
     Active Substance: ASPIRIN
     Indication: HYPERTENSION
  5. FUROSEMIDE. [Interacting]
     Active Substance: FUROSEMIDE
     Indication: HYPERTENSION
  6. LORATADINE. [Suspect]
     Active Substance: LORATADINE
     Indication: ANTIALLERGIC THERAPY
     Dosage: UNK
     Route: 048
  7. LISINOPRIL. [Concomitant]
     Active Substance: LISINOPRIL
     Indication: CHRONIC KIDNEY DISEASE
     Dosage: UNK
  8. CEFUROXIME AXETIL. [Interacting]
     Active Substance: CEFUROXIME AXETIL
     Indication: ESCHERICHIA URINARY TRACT INFECTION
     Dosage: 500 MG, BID
     Route: 048
  9. LISINOPRIL. [Concomitant]
     Active Substance: LISINOPRIL
     Indication: CHRONIC KIDNEY DISEASE
     Dosage: UNK
  10. CALCIUM CARBONATE [CALCIUM CARBONATE] [Concomitant]
     Indication: CHRONIC KIDNEY DISEASE
     Dosage: UNK
  11. CALCIUM CARBONATE [CALCIUM CARBONATE] [Concomitant]
     Indication: HYPERTENSION
  12. FUROSEMIDE. [Interacting]
     Active Substance: FUROSEMIDE
     Indication: CHRONIC KIDNEY DISEASE
     Dosage: UNK
  13. FUROSEMIDE. [Interacting]
     Active Substance: FUROSEMIDE
     Indication: ESCHERICHIA INFECTION

REACTIONS (6)
  - Gastrointestinal haemorrhage [None]
  - Granulocytopenia [None]
  - Drug ineffective [Unknown]
  - Toxic epidermal necrolysis [Fatal]
  - Sepsis [Unknown]
  - Multiple organ dysfunction syndrome [None]
